FAERS Safety Report 5646980-8 (Version None)
Quarter: 2008Q1

REPORT INFORMATION
  Report Type: 
  Country: None (occurrence: None)
  Receive Date: 20080303
  Receipt Date: 20080226
  Transmission Date: 20080703
  Serious: Yes (Life-Threatening, Hospitalization)
  Sender: FDA-Public Use
  Company Number: B0506206A

PATIENT
  Age: 75 Year
  Sex: Male

DRUGS (5)
  1. ROSIGLITAZONE [Suspect]
     Dates: start: 20071105, end: 20071205
  2. BISOPROLOL FUMARATE [Concomitant]
     Dosage: 2.5MG PER DAY
     Route: 048
  3. CLEXANE [Concomitant]
     Route: 058
  4. SIMVASTATIN [Concomitant]
     Dosage: 40MG PER DAY
  5. EPROSARTAN [Concomitant]

REACTIONS (4)
  - CHEST PAIN [None]
  - CORONARY ARTERY DISEASE [None]
  - MUSCULOSKELETAL PAIN [None]
  - PAIN IN JAW [None]
